FAERS Safety Report 17240776 (Version 3)
Quarter: 2020Q1

REPORT INFORMATION
  Report Type: Report from Study
  Country: CH (occurrence: IL)
  Receive Date: 20200107
  Receipt Date: 20200303
  Transmission Date: 20200409
  Serious: Yes (Death, Other)
  Sender: FDA-Public Use
  Company Number: IL-ASTELLAS-2020US000302

PATIENT
  Age: 10 Year
  Sex: Female
  Weight: 39 kg

DRUGS (4)
  1. AMPHOTERICIN B, LIPOSOME [Concomitant]
     Active Substance: AMPHOTERICIN B
     Indication: PRODUCT USED FOR UNKNOWN INDICATION
     Dosage: UNK UNK, UNKNOWN FREQ.
     Route: 065
  2. ISAVUCONAZOLE [Suspect]
     Active Substance: ISAVUCONAZOLE
     Indication: MUCORMYCOSIS
     Route: 042
     Dates: start: 20191124, end: 20191124
  3. ISAVUCONAZOLE [Suspect]
     Active Substance: ISAVUCONAZOLE
     Indication: MUCORMYCOSIS
     Route: 045
     Dates: start: 20191121, end: 20191124
  4. ISAVUCONAZOLE [Suspect]
     Active Substance: ISAVUCONAZOLE
     Route: 042
     Dates: start: 20191125, end: 20191212

REACTIONS (4)
  - Intestinal perforation [Fatal]
  - Intentional product use issue [Unknown]
  - Gastrointestinal necrosis [Fatal]
  - Therapy cessation [Unknown]

NARRATIVE: CASE EVENT DATE: 2019
